FAERS Safety Report 18453070 (Version 1)
Quarter: 2020Q4

REPORT INFORMATION
  Report Type: Spontaneous
  Country: US (occurrence: US)
  Receive Date: 20201102
  Receipt Date: 20201102
  Transmission Date: 20210114
  Serious: Yes (Other)
  Sender: FDA-Public Use
  Company Number: None

PATIENT
  Age: 69 Year
  Sex: Female
  Weight: 55.2 kg

DRUGS (8)
  1. DEXAMETHASONE 6 MG [Concomitant]
     Dates: start: 20201026, end: 20201027
  2. ALBUMIN 25% 12.5 G [Concomitant]
     Dates: start: 20201026, end: 20201027
  3. PRECEDEX INFUSION [Concomitant]
     Dates: start: 20201026, end: 20201027
  4. LEVOPHED INFUSION [Concomitant]
     Dates: start: 20201026, end: 20201027
  5. ZOSYN [Concomitant]
     Active Substance: PIPERACILLIN SODIUM\TAZOBACTAM SODIUM
     Dates: start: 20201026, end: 20201027
  6. REMDESIVIR. [Suspect]
     Active Substance: REMDESIVIR
     Indication: COVID-19
     Dosage: ?          OTHER FREQUENCY:ONCE;?
     Route: 042
     Dates: start: 20201026, end: 20201027
  7. HEPARIN INFUSION [Concomitant]
     Dates: start: 20201026, end: 20201027
  8. VANCOMYCIN 1 G [Concomitant]
     Dates: start: 20201026, end: 20201027

REACTIONS (1)
  - Alanine aminotransferase increased [None]

NARRATIVE: CASE EVENT DATE: 20201027
